FAERS Safety Report 5369827-6 (Version None)
Quarter: 2007Q2

REPORT INFORMATION
  Report Type: 
  Country: None (occurrence: None)
  Receive Date: 20070618
  Receipt Date: 20070604
  Transmission Date: 20071010
  Serious: Yes (Hospitalization)
  Sender: FDA-Public Use
  Company Number: 200711924

PATIENT
  Age: 40 Year
  Sex: Female

DRUGS (2)
  1. RHOPHYLAC (ANTI-D IMMUNOGLOBULIN) (CSL BEHRING) [Suspect]
     Indication: PROPHYLAXIS AGAINST RH ISOIMMUNISATION
     Dosage: 300 UG ONCE IM
     Route: 030
     Dates: start: 20070222, end: 20070222
  2. RHESOGAM [Concomitant]

REACTIONS (11)
  - ARTHRALGIA [None]
  - ARTHRITIS [None]
  - BLOOD LACTATE DEHYDROGENASE INCREASED [None]
  - CAESAREAN SECTION [None]
  - COXSACKIE VIRUS SEROLOGY TEST POSITIVE [None]
  - DRUG EXPOSURE DURING PREGNANCY [None]
  - LYMPHADENOPATHY [None]
  - MYCOPLASMA SEROLOGY POSITIVE [None]
  - PYREXIA [None]
  - RASH MACULO-PAPULAR [None]
  - SERUM SICKNESS [None]
